FAERS Safety Report 9797130 (Version 1)
Quarter: 2014Q1

REPORT INFORMATION
  Report Type: Spontaneous
  Country: US (occurrence: None)
  Receive Date: 20140102
  Receipt Date: 20140102
  Transmission Date: 20141002
  Serious: Yes (Disabling)
  Sender: FDA-Public Use
  Company Number: None

PATIENT
  Age: 39 Year
  Sex: Male
  Weight: 79.38 kg

DRUGS (1)
  1. DEPO MEDROL [Suspect]
     Indication: BACK PAIN
     Dates: start: 20131108, end: 20131108

REACTIONS (12)
  - Burning sensation [None]
  - Urinary retention [None]
  - Haematochezia [None]
  - Genital hypoaesthesia [None]
  - Gastrointestinal disorder [None]
  - Hypoaesthesia [None]
  - Neuropathy peripheral [None]
  - Flushing [None]
  - Insomnia [None]
  - Dry mouth [None]
  - Arthralgia [None]
  - Hypoaesthesia [None]
